FAERS Safety Report 13404462 (Version 1)
Quarter: 2017Q2

REPORT INFORMATION
  Report Type: Spontaneous
  Country: US (occurrence: US)
  Receive Date: 20170405
  Receipt Date: 20170405
  Transmission Date: 20170830
  Serious: No
  Sender: FDA-Public Use
  Company Number: US-009507513-1703USA003598

PATIENT
  Age: 20 Year
  Sex: Female
  Weight: 73.47 kg

DRUGS (1)
  1. NEXPLANON [Suspect]
     Active Substance: ETONOGESTREL
     Indication: CONTRACEPTION
     Dosage: UNK, 3 YEARS
     Route: 059
     Dates: start: 20151004

REACTIONS (14)
  - Vaginal haemorrhage [Unknown]
  - Asthenia [Unknown]
  - Implant site pain [Unknown]
  - Back pain [Unknown]
  - Breast pain [Unknown]
  - Implant site swelling [Unknown]
  - Faeces discoloured [Unknown]
  - Hypoaesthesia [Unknown]
  - Chest pain [Unknown]
  - Weight increased [Unknown]
  - Abdominal pain [Unknown]
  - Mood swings [Unknown]
  - Headache [Unknown]
  - Pain [Unknown]

NARRATIVE: CASE EVENT DATE: 2016
